FAERS Safety Report 11791414 (Version 1)
Quarter: 2015Q4

REPORT INFORMATION
  Report Type: Spontaneous
  Country: FR (occurrence: FR)
  Receive Date: 20151201
  Receipt Date: 20151201
  Transmission Date: 20160305
  Serious: Yes (Hospitalization)
  Sender: FDA-Public Use
  Company Number: FR-SA-2015SA190499

PATIENT
  Age: 83 Year
  Sex: Male

DRUGS (2)
  1. GUTRON [Concomitant]
     Active Substance: MIDODRINE
     Route: 065
     Dates: start: 20151014, end: 20151016
  2. ENOXAPARIN SODIUM. [Suspect]
     Active Substance: ENOXAPARIN SODIUM
     Indication: THROMBOSIS
     Route: 065
     Dates: start: 20151014, end: 20151028

REACTIONS (1)
  - Acute generalised exanthematous pustulosis [Recovering/Resolving]

NARRATIVE: CASE EVENT DATE: 20151027
